FAERS Safety Report 7859931-2 (Version None)
Quarter: 2011Q4

REPORT INFORMATION
  Report Type: 
  Country: None (occurrence: None)
  Receive Date: 20111006
  Receipt Date: 20111006
  Transmission Date: 20120403
  Serious: Yes (Hospitalization)
  Sender: FDA-Public Use
  Company Number: None

PATIENT
  Age: 69 Year
  Sex: Male

DRUGS (1)
  1. NEXAVAR [Suspect]
     Indication: HEPATIC NEOPLASM MALIGNANT
     Dosage: 400 MG BID P.O
     Route: 048
     Dates: start: 20111019

REACTIONS (4)
  - CONFUSIONAL STATE [None]
  - SOMNOLENCE [None]
  - AMMONIA INCREASED [None]
  - DEHYDRATION [None]
